FAERS Safety Report 6067859-6 (Version None)
Quarter: 2009Q1

REPORT INFORMATION
  Report Type: 
  Country: None (occurrence: None)
  Receive Date: 20090203
  Receipt Date: 20090120
  Transmission Date: 20090719
  Serious: Yes (Hospitalization)
  Sender: FDA-Public Use
  Company Number: 1-16220005

PATIENT
  Age: 20 Year
  Sex: Male

DRUGS (1)
  1. SOLODYN [Suspect]
     Indication: ACNE
     Dosage: 90 MG DAILY, ORAL
     Route: 048
     Dates: start: 20080131, end: 20080314

REACTIONS (16)
  - ASTHENIA [None]
  - AURICULAR SWELLING [None]
  - CHILLS [None]
  - DRUG TOXICITY [None]
  - FATIGUE [None]
  - GAIT DISTURBANCE [None]
  - HEADACHE [None]
  - INSOMNIA [None]
  - JOINT SWELLING [None]
  - LIP SWELLING [None]
  - OEDEMA PERIPHERAL [None]
  - PALLOR [None]
  - PYREXIA [None]
  - RASH [None]
  - SWELLING FACE [None]
  - WEIGHT DECREASED [None]
